FAERS Safety Report 25902576 (Version 1)
Quarter: 2025Q4

REPORT INFORMATION
  Report Type: Report from Study
  Country: US (occurrence: US)
  Receive Date: 20251009
  Receipt Date: 20251009
  Transmission Date: 20260117
  Serious: Yes (Hospitalization, Other)
  Sender: UCB
  Company Number: UG-069-000006568

PATIENT
  Sex: Female

DRUGS (1)
  1. BIMEKIZUMAB [Suspect]
     Active Substance: BIMEKIZUMAB
     Indication: Hidradenitis
     Dosage: 320 MILLIGRAM, EV 2 WEEKS(QOW)
     Route: 058
     Dates: start: 20250723

REACTIONS (9)
  - Hernia repair [Unknown]
  - Hernia [Unknown]
  - Administration site pain [Unknown]
  - Headache [Unknown]
  - Hidradenitis [Recovering/Resolving]
  - Condition aggravated [Recovering/Resolving]
  - Stress [Not Recovered/Not Resolved]
  - Medical diet [Unknown]
  - Product dose omission issue [Unknown]

NARRATIVE: CASE EVENT DATE: 20250101
